FAERS Safety Report 17661794 (Version 1)
Quarter: 2020Q2

REPORT INFORMATION
  Report Type: Spontaneous
  Country: DE (occurrence: DE)
  Receive Date: 20200413
  Receipt Date: 20200413
  Transmission Date: 20200713
  Serious: Yes (Hospitalization)
  Sender: FDA-Public Use
  Company Number: DE-TEVA-2020-DE-1222789

PATIENT
  Age: 92 Year
  Sex: Female

DRUGS (11)
  1. METAMIZOL [Concomitant]
     Active Substance: METAMIZOLE SODIUM
     Dosage: 500 MG, 30-0-30-0, DROP
     Route: 048
  2. NIFEDIPIN [Concomitant]
     Active Substance: NIFEDIPINE
     Dosage: 10 MG, IF REQUIRED,
     Route: 048
  3. CALCIUM/COLECALCIFEROL [Concomitant]
     Active Substance: CALCIUM\CHOLECALCIFEROL
     Dosage: 400,600 MA/IE, 1-0-0-0
     Route: 048
  4. GLYCOPYRRONIUMBROMID [Concomitant]
     Dosage: 50 MICROGRAM DAILY; 1-0-0-0
     Route: 048
  5. PANTOPRAZOL [Concomitant]
     Active Substance: PANTOPRAZOLE SODIUM
     Dosage: 40 MILLIGRAM DAILY; 0-0-1-0
     Route: 048
  6. METOPROLOL. [Concomitant]
     Active Substance: METOPROLOL
     Dosage: 100 MILLIGRAM DAILY; 1-0-1-0
     Route: 048
  7. FENOTEROL W/IPRATROPIUM [Concomitant]
     Active Substance: FENOTEROL\IPRATROPIUM BROMIDE
     Dosage: 0.05,0.02 MG,IF REQUIRED
     Route: 048
  8. HYDROCHLOROTHIAZID [Suspect]
     Active Substance: HYDROCHLOROTHIAZIDE
     Dosage: 25 MILLIGRAM DAILY; 1-0-0-0
     Route: 048
  9. MELPERON [Concomitant]
     Active Substance: MELPERONE
     Dosage: 25 MILLIGRAM DAILY; 1-0-0-0
     Route: 048
  10. ACETYLSALICYLSAURE [Concomitant]
     Active Substance: ASPIRIN
     Dosage: 100 MILLIGRAM DAILY; 1-0-0-0
     Route: 048
  11. ALLOPURINOL. [Concomitant]
     Active Substance: ALLOPURINOL
     Dosage: 100 MILLIGRAM DAILY; 1-0-0-0
     Route: 048

REACTIONS (4)
  - Delirium [Unknown]
  - Confusional state [Unknown]
  - General physical health deterioration [Unknown]
  - Asthenia [Unknown]
